FAERS Safety Report 17672687 (Version 6)
Quarter: 2021Q2

REPORT INFORMATION
  Report Type: Spontaneous
  Country: US (occurrence: US)
  Receive Date: 20200415
  Receipt Date: 20210419
  Transmission Date: 20210716
  Serious: Yes (Hospitalization, Other)
  Sender: FDA-Public Use
  Company Number: US-TAKEDA-2020TUS018386

PATIENT
  Sex: Female
  Weight: 201 kg

DRUGS (3)
  1. DEXAMETHASONE. [Suspect]
     Active Substance: DEXAMETHASONE
     Indication: PRODUCT USED FOR UNKNOWN INDICATION
     Dosage: UNK
     Route: 065
  2. NINLARO [Suspect]
     Active Substance: IXAZOMIB CITRATE
     Dosage: 3 MILLIGRAM
     Route: 048
     Dates: start: 20201102
  3. NINLARO [Suspect]
     Active Substance: IXAZOMIB CITRATE
     Indication: PLASMA CELL MYELOMA
     Dosage: 3 MILLIGRAM
     Route: 048
     Dates: start: 20200323

REACTIONS (13)
  - Peripheral swelling [Unknown]
  - Urinary tract infection [Not Recovered/Not Resolved]
  - Cardiac failure congestive [Unknown]
  - Incontinence [Unknown]
  - Fall [Unknown]
  - Lip swelling [Unknown]
  - Erythema [Unknown]
  - Dementia [Unknown]
  - Angiopathy [Unknown]
  - Renal failure [Unknown]
  - Tremor [Unknown]
  - Blood calcium decreased [Unknown]
  - Blood glucose increased [Unknown]
